FAERS Safety Report 20251966 (Version 1)
Quarter: 2021Q4

REPORT INFORMATION
  Report Type: Report from Study
  Country: US (occurrence: US)
  Receive Date: 20211229
  Receipt Date: 20211229
  Transmission Date: 20220304
  Serious: No
  Sender: FDA-Public Use
  Company Number: US-CLOVIS ONCOLOGY-CLO-2021-000862

PATIENT
  Sex: Female

DRUGS (1)
  1. RUBRACA [Suspect]
     Active Substance: RUCAPARIB CAMSYLATE
     Indication: Ovarian cancer
     Dosage: 600 MILLIGRAM, BID
     Route: 048

REACTIONS (12)
  - Blood pressure fluctuation [Not Recovered/Not Resolved]
  - Anxiety [Recovering/Resolving]
  - Lymphoedema [Not Recovered/Not Resolved]
  - Pollakiuria [Unknown]
  - Hair growth abnormal [Unknown]
  - Temperature intolerance [Unknown]
  - Insomnia [Recovering/Resolving]
  - Headache [Not Recovered/Not Resolved]
  - Rash [Not Recovered/Not Resolved]
  - Fatigue [Unknown]
  - Taste disorder [Unknown]
  - Blood creatinine increased [Unknown]
